FAERS Safety Report 7416330-5 (Version None)
Quarter: 2011Q2

REPORT INFORMATION
  Report Type: 
  Country: None (occurrence: None)
  Receive Date: 20110414
  Receipt Date: 20110414
  Transmission Date: 20111010
  Serious: Yes (Hospitalization)
  Sender: FDA-Public Use
  Company Number: FR-ABBOTT-11P-056-0717438-00

PATIENT
  Sex: Female

DRUGS (9)
  1. RAMIPRIL [Concomitant]
     Indication: PRODUCT USED FOR UNKNOWN INDICATION
  2. STABLON [Concomitant]
     Indication: PRODUCT USED FOR UNKNOWN INDICATION
  3. NOVOMIX [Concomitant]
     Indication: PRODUCT USED FOR UNKNOWN INDICATION
  4. LERCAN [Concomitant]
     Indication: PRODUCT USED FOR UNKNOWN INDICATION
  5. FLUINDIONE [Concomitant]
     Indication: PRODUCT USED FOR UNKNOWN INDICATION
  6. DEDROGYL [Concomitant]
     Indication: PRODUCT USED FOR UNKNOWN INDICATION
  7. VERCYTE [Suspect]
     Indication: POLYCYTHAEMIA VERA
     Route: 048
     Dates: end: 20101118
  8. VAXIGRIP [Suspect]
     Indication: PRODUCT USED FOR UNKNOWN INDICATION
     Route: 030
     Dates: start: 20101119, end: 20101119
  9. KAYEXALATE [Concomitant]
     Indication: PRODUCT USED FOR UNKNOWN INDICATION

REACTIONS (15)
  - ASTHENIA [None]
  - OXYGEN SATURATION DECREASED [None]
  - DYSPNOEA [None]
  - HYPOXIA [None]
  - ANAEMIA [None]
  - LUNG INFILTRATION [None]
  - CARDIAC FAILURE [None]
  - LYMPHOPENIA [None]
  - BRAIN NATRIURETIC PEPTIDE INCREASED [None]
  - INTERSTITIAL LUNG DISEASE [None]
  - SYSTEMIC INFLAMMATORY RESPONSE SYNDROME [None]
  - PLEURAL EFFUSION [None]
  - RALES [None]
  - CHEST X-RAY ABNORMAL [None]
  - PYREXIA [None]
